FAERS Safety Report 8975943 (Version 1)
Quarter: 2012Q4

REPORT INFORMATION
  Report Type: 
  Country: GB (occurrence: GB)
  Receive Date: 20121219
  Receipt Date: 20121219
  Transmission Date: 20130627
  Serious: Yes (Disabling)
  Sender: FDA-Public Use
  Company Number: GB-GLAXOSMITHKLINE-B0853151A

PATIENT
  Age: 72 Year
  Sex: Male
  Weight: 112.1 kg

DRUGS (23)
  1. SERETIDE [Suspect]
     Dates: start: 20121123
  2. QVAR [Concomitant]
     Dates: start: 20120725, end: 20121102
  3. ATIMOS [Concomitant]
     Dates: start: 20120823
  4. CIALIS [Concomitant]
     Dates: start: 20120823, end: 20120920
  5. SIMVASTATIN [Concomitant]
     Dates: start: 20120823
  6. VALSARTAN [Concomitant]
     Dates: start: 20120823, end: 20120920
  7. FLECAINIDE ACETATE [Concomitant]
     Dates: start: 20120910
  8. MONTELUKAST [Concomitant]
     Dates: start: 20120910
  9. WARFARIN SODIUM [Concomitant]
     Dates: start: 20120910
  10. PREDNISOLONE [Concomitant]
     Dates: start: 20120911, end: 20120918
  11. DIAZEPAM [Concomitant]
     Dates: start: 20121004, end: 20121018
  12. AQUEOUS CREAM [Concomitant]
     Dates: start: 20121010
  13. CO-CODAMOL [Concomitant]
     Dates: start: 20121010
  14. FYBOGEL [Concomitant]
     Dates: start: 20121010, end: 20121109
  15. AZITHROMYCIN [Concomitant]
     Dates: start: 20121018, end: 20121021
  16. PREDNISOLONE [Concomitant]
     Dates: start: 20121018, end: 20121021
  17. DICLOFENAC SODIUM [Concomitant]
     Dates: start: 20121105
  18. GLYCERYL TRINITRATE [Concomitant]
     Dates: start: 20121105
  19. MOMETASONE FUROATE [Concomitant]
     Dates: start: 20121105
  20. QVAR [Concomitant]
     Dates: start: 20121105
  21. VENTOLIN [Concomitant]
     Dates: start: 20121105
  22. AZITHROMYCIN [Concomitant]
     Dates: start: 20121115, end: 20121118
  23. PREDNISOLONE [Concomitant]
     Dates: start: 20121115, end: 20121118

REACTIONS (3)
  - Epistaxis [Recovering/Resolving]
  - Oropharyngeal pain [Recovering/Resolving]
  - Chest discomfort [Recovering/Resolving]
